FAERS Safety Report 16180146 (Version 1)
Quarter: 2019Q2

REPORT INFORMATION
  Report Type: Spontaneous
  Country: FR (occurrence: FR)
  Receive Date: 20190410
  Receipt Date: 20190410
  Transmission Date: 20190711
  Serious: Yes (Hospitalization)
  Sender: FDA-Public Use
  Company Number: FR-PFIZER INC-HQWYE220309MAR07

PATIENT
  Age: 52 Year
  Sex: Male

DRUGS (3)
  1. INIPOMP [Suspect]
     Active Substance: PANTOPRAZOLE SODIUM
     Dosage: 20 MILLIGRAM, QD
     Route: 048
     Dates: start: 20070115, end: 20070116
  2. CELEBREX [Suspect]
     Active Substance: CELECOXIB
     Indication: ARTHRITIS
     Dosage: 200.0 MG, 2X/DAY
     Route: 048
     Dates: start: 20070115, end: 20070116
  3. DEXTROPROPOXYPHENE/PARACETAMOL [Suspect]
     Active Substance: ACETAMINOPHEN\PROPOXYPHENE HYDROCHLORIDE
     Dosage: 430.0 MG, 1X/DAY
     Route: 048
     Dates: start: 20070115, end: 20070117

REACTIONS (4)
  - Musculoskeletal chest pain [Recovered/Resolved]
  - Loss of consciousness [Recovered/Resolved]
  - Dyspnoea [Recovered/Resolved]
  - Malaise [Recovered/Resolved]

NARRATIVE: CASE EVENT DATE: 20070116
